FAERS Safety Report 4878738-1 (Version None)
Quarter: 2006Q1

REPORT INFORMATION
  Report Type: 
  Country: None (occurrence: None)
  Receive Date: 20060110
  Receipt Date: 20051229
  Transmission Date: 20060701
  Serious: Yes (Hospitalization)
  Sender: FDA-Public Use
  Company Number: 2005PV005458

PATIENT
  Age: 55 Year
  Sex: Female
  Weight: 104.3273 kg

DRUGS (11)
  1. BYETTA [Suspect]
     Indication: DIABETES MELLITUS NON-INSULIN-DEPENDENT
     Dosage: SEE IMAGE
     Route: 058
     Dates: start: 20051201, end: 20051213
  2. BYETTA [Suspect]
     Indication: DIABETES MELLITUS NON-INSULIN-DEPENDENT
     Dosage: SEE IMAGE
     Route: 058
     Dates: start: 20051224, end: 20051225
  3. GLUCOPHAGE [Concomitant]
  4. LISINOPRIL [Concomitant]
  5. PROTONIX [Concomitant]
  6. TAPAZOLE [Concomitant]
  7. PLAVIX [Concomitant]
  8. PRAVACHOL [Concomitant]
  9. ZETIA [Concomitant]
  10. WELLBUTRIN [Concomitant]
  11. TOPRAL [Concomitant]

REACTIONS (4)
  - CHEST PAIN [None]
  - DRUG INEFFECTIVE [None]
  - MYOCARDIAL INFARCTION [None]
  - NAUSEA [None]
